FAERS Safety Report 7032256-3 (Version None)
Quarter: 2010Q4

REPORT INFORMATION
  Report Type: 
  Country: None (occurrence: None)
  Receive Date: 20101007
  Receipt Date: 20100408
  Transmission Date: 20110411
  Serious: Yes (Death, Hospitalization)
  Sender: FDA-Public Use
  Company Number: GB-BRISTOL-MYERS SQUIBB COMPANY-15062383

PATIENT
  Age: 49 Year
  Sex: Female

DRUGS (3)
  1. CETUXIMAB [Suspect]
     Indication: NON-SMALL CELL LUNG CANCER
     Dosage: STRENTH 5MG/ML. RECENT INFUSION ON 31-MAR-2010.
     Route: 042
     Dates: start: 20100310, end: 20100331
  2. CARBOPLATIN [Suspect]
     Indication: NON-SMALL CELL LUNG CANCER
     Dosage: DAY 1 0F 21 DAY CYCLE; RECENT INFUSION ON 31-MAR-2010 1DF-AUC5
     Route: 042
     Dates: start: 20100310, end: 20100331
  3. GEMCITABINE [Suspect]
     Indication: NON-SMALL CELL LUNG CANCER
     Dosage: RECENT INFUSION ON 31-MAR-2010.1,8 OF 21-DAY CYCLE.
     Route: 042
     Dates: start: 20100310, end: 20100331

REACTIONS (6)
  - ASTHENIA [None]
  - LOWER RESPIRATORY TRACT INFECTION [None]
  - MALIGNANT NEOPLASM PROGRESSION [None]
  - NON-SMALL CELL LUNG CANCER [None]
  - PULMONARY EMBOLISM [None]
  - VOMITING [None]
